FAERS Safety Report 25543994 (Version 1)
Quarter: 2025Q3

REPORT INFORMATION
  Report Type: Spontaneous
  Country: US (occurrence: US)
  Receive Date: 20250711
  Receipt Date: 20250711
  Transmission Date: 20251021
  Serious: Yes (Other)
  Sender: QUVA PHARMA
  Company Number: US-QuVa Pharma-2180335

PATIENT
  Age: 28 Year
  Sex: Female
  Weight: 126 kg

DRUGS (2)
  1. OXYTOCIN [Suspect]
     Active Substance: OXYTOCIN
     Indication: Labour augmentation
     Dates: start: 20250621, end: 20250622
  2. OXYTOCIN [Suspect]
     Active Substance: OXYTOCIN
     Indication: Postpartum haemorrhage

REACTIONS (1)
  - Postpartum haemorrhage [Recovered/Resolved]

NARRATIVE: CASE EVENT DATE: 20250622
